FAERS Safety Report 5759576-4 (Version None)
Quarter: 2008Q2

REPORT INFORMATION
  Report Type: 
  Country: None (occurrence: None)
  Receive Date: 20080605
  Receipt Date: 20080523
  Transmission Date: 20081010
  Serious: Yes (Hospitalization)
  Sender: FDA-Public Use
  Company Number: FR-ASTRAZENECA-2008SE02820

PATIENT
  Age: 31509 Day
  Sex: Female

DRUGS (7)
  1. COKENZEN [Suspect]
     Indication: HYPERTENSION
     Route: 048
     Dates: end: 20080423
  2. LASILIX [Interacting]
     Indication: HYPERTENSION
     Route: 048
     Dates: start: 20080421, end: 20080423
  3. LERCAN [Concomitant]
     Indication: HYPERTENSION
     Route: 048
  4. AMIODARONE HCL [Concomitant]
     Indication: ATRIAL FIBRILLATION
     Route: 048
  5. PREVISCAN [Concomitant]
     Indication: ATRIAL FIBRILLATION
     Route: 048
  6. LORAZEPAM [Concomitant]
     Indication: DRUG USE FOR UNKNOWN INDICATION
     Route: 048
  7. PRAVASTATIN [Concomitant]
     Indication: PROPHYLAXIS
     Route: 048

REACTIONS (3)
  - DRUG INTERACTION [None]
  - HYPONATRAEMIA [None]
  - ORTHOSTATIC HYPOTENSION [None]
